FAERS Safety Report 20710783 (Version 1)
Quarter: 2022Q2

REPORT INFORMATION
  Report Type: Other
  Country: US (occurrence: None)
  Receive Date: 20220414
  Receipt Date: 20220414
  Transmission Date: 20220721
  Serious: No
  Sender: FDA-Public Use
  Company Number: US-ROCHE-3068206

PATIENT
  Age: 57 Year
  Sex: Female
  Weight: 53.118 kg

DRUGS (8)
  1. OCREVUS [Suspect]
     Active Substance: OCRELIZUMAB
     Indication: Relapsing-remitting multiple sclerosis
     Dosage: HALF DOSES ;ONGOING: NO
     Route: 042
     Dates: start: 2020
  2. OCREVUS [Suspect]
     Active Substance: OCRELIZUMAB
     Dosage: YES
     Route: 042
  3. OCREVUS [Suspect]
     Active Substance: OCRELIZUMAB
     Dosage: SUBSEQUENT DOSE 600 MG EVERY 6 MONTHS
     Route: 042
  4. TYLENOL [Concomitant]
     Active Substance: ACETAMINOPHEN
     Indication: Premedication
     Route: 065
     Dates: start: 2020, end: 2022
  5. BENADRYL [Concomitant]
     Active Substance: DIPHENHYDRAMINE HYDROCHLORIDE
     Indication: Premedication
     Dates: start: 2020, end: 2022
  6. MODERNA COVID-19 VACCINE [Concomitant]
     Active Substance: ELASOMERAN
  7. INFLUENZA VIRUS VACCINE [Concomitant]
     Active Substance: INFLUENZA VIRUS VACCINE
     Route: 065
     Dates: start: 202110
  8. TECFIDERA [Concomitant]
     Active Substance: DIMETHYL FUMARATE

REACTIONS (3)
  - COVID-19 [Recovered/Resolved]
  - Alopecia [Unknown]
  - Weight increased [Recovered/Resolved]

NARRATIVE: CASE EVENT DATE: 20211101
